FAERS Safety Report 25616432 (Version 1)
Quarter: 2025Q3

REPORT INFORMATION
  Report Type: Report from Study
  Country: TH (occurrence: TH)
  Receive Date: 20250729
  Receipt Date: 20250729
  Transmission Date: 20251020
  Serious: Yes (Hospitalization)
  Sender: ALK-ABELLO
  Company Number: TH-ALK-ABELLO A/S-2025AA002603

PATIENT

DRUGS (2)
  1. HISTAMINE PHOSPHATE [Suspect]
     Active Substance: HISTAMINE PHOSPHATE
     Indication: Rhinitis allergic
  2. PSEUDOEPHEDRINE [Concomitant]
     Active Substance: PSEUDOEPHEDRINE
     Indication: Product used for unknown indication

REACTIONS (2)
  - Hypersensitivity [Recovered/Resolved]
  - Intentional product use issue [Unknown]
